FAERS Safety Report 6934481-6 (Version None)
Quarter: 2010Q3

REPORT INFORMATION
  Report Type: 
  Country: None (occurrence: None)
  Receive Date: 20100820
  Receipt Date: 20100720
  Transmission Date: 20110219
  Serious: No
  Sender: FDA-Public Use
  Company Number: US-BAYER-201018569BCC

PATIENT
  Age: 72 Year
  Sex: Female
  Weight: 77 kg

DRUGS (4)
  1. ALEVE (CAPLET) [Suspect]
     Indication: NECK PAIN
     Dosage: 220 MG OR 440 MG DAILY
     Route: 048
  2. THYROID PILL [Concomitant]
     Route: 065
  3. NEXIUM [Concomitant]
     Route: 065
  4. UNKNOWN MEDICATION [Concomitant]
     Route: 065

REACTIONS (3)
  - MUSCULOSKELETAL PAIN [None]
  - NECK PAIN [None]
  - PAIN IN EXTREMITY [None]
